FAERS Safety Report 8911516 (Version 1)
Quarter: 2012Q4

REPORT INFORMATION
  Report Type: Spontaneous
  Country: US (occurrence: None)
  Receive Date: 20121114
  Receipt Date: 20121114
  Transmission Date: 20130627
  Serious: Yes (Hospitalization)
  Sender: FDA-Public Use
  Company Number: None

PATIENT
  Sex: Female

DRUGS (4)
  1. TRACLEER [Suspect]
     Indication: PRIMARY PULMONARY HYPERTENSION
     Route: 048
     Dates: start: 20120918, end: 20121101
  2. TRACLEER [Suspect]
     Route: 048
     Dates: start: 20120918, end: 20121101
  3. TRACLEER [Suspect]
     Indication: PRIMARY PULMONARY HYPERTENSION
  4. TRACLEER [Suspect]

REACTIONS (1)
  - Cardiac failure congestive [None]
